FAERS Safety Report 10161340 (Version 2)
Quarter: 2014Q2

REPORT INFORMATION
  Report Type: Spontaneous
  Country: CA (occurrence: CA)
  Receive Date: 20140509
  Receipt Date: 20140509
  Transmission Date: 20141212
  Serious: Yes (Other)
  Sender: FDA-Public Use
  Company Number: CA-AMGEN-CANSP2014010613

PATIENT
  Age: 78 Year
  Sex: Female

DRUGS (2)
  1. ENBREL [Suspect]
     Indication: RHEUMATOID ARTHRITIS
     Dosage: 50 MG, UNK
     Route: 065
     Dates: start: 20111003
  2. ASPIRIN [Concomitant]
     Dosage: 81 MG, UNK

REACTIONS (6)
  - Glaucoma [Unknown]
  - Visual acuity reduced [Unknown]
  - Erythropsia [Unknown]
  - Eye irritation [Unknown]
  - Eye pain [Unknown]
  - Eye disorder [Unknown]
